FAERS Safety Report 7906870-4 (Version None)
Quarter: 2011Q4

REPORT INFORMATION
  Report Type: 
  Country: None (occurrence: None)
  Receive Date: 20111109
  Receipt Date: 20111109
  Transmission Date: 20120403
  Serious: Yes (Other)
  Sender: FDA-Public Use
  Company Number: None

PATIENT
  Sex: Female

DRUGS (1)
  1. FORTEO [Suspect]
     Dosage: 20MCG;DAILY;SC
     Route: 058
     Dates: start: 20110814, end: 20111109

REACTIONS (1)
  - WEIGHT DECREASED [None]
